FAERS Safety Report 9178521 (Version 5)
Quarter: 2013Q4

REPORT INFORMATION
  Report Type: Report from Study
  Country: BR (occurrence: BR)
  Receive Date: 20130321
  Receipt Date: 20131003
  Transmission Date: 20140711
  Serious: Yes (Death, Other)
  Sender: FDA-Public Use
  Company Number: BR-ROCHE-1036654

PATIENT
  Sex: Male
  Weight: 100 kg

DRUGS (10)
  1. MABTHERA [Suspect]
     Indication: RHEUMATOID ARTHRITIS
     Route: 042
     Dates: start: 20110902, end: 20110902
  2. RAMIPRIL [Concomitant]
  3. SIMVASTATIN [Concomitant]
  4. ASPIRIN [Concomitant]
  5. PURAN T4 [Concomitant]
  6. OMEPRAZOL [Concomitant]
  7. EPREX [Concomitant]
  8. SOMALIUM [Concomitant]
  9. CARVEDILOL [Concomitant]
     Route: 065
  10. SEVELAMER [Concomitant]

REACTIONS (4)
  - Cardiac disorder [Fatal]
  - Intervertebral disc protrusion [Not Recovered/Not Resolved]
  - Immune system disorder [Recovered/Resolved]
  - Muscle disorder [Not Recovered/Not Resolved]
